FAERS Safety Report 21073768 (Version 1)
Quarter: 2022Q3

REPORT INFORMATION
  Report Type: Spontaneous
  Country: US (occurrence: US)
  Receive Date: 20220713
  Receipt Date: 20220713
  Transmission Date: 20221027
  Serious: No
  Sender: FDA-Public Use
  Company Number: US-MTPC-MTDA2022-0018414

PATIENT
  Sex: Female

DRUGS (2)
  1. RADICAVA [Suspect]
     Active Substance: EDARAVONE
     Indication: Amyotrophic lateral sclerosis
     Dosage: UNK DAILY DOSING FOR 14 DAYS, OFF FOR 14 DAYS
     Route: 042
     Dates: start: 202204
  2. RADICAVA [Suspect]
     Active Substance: EDARAVONE
     Dosage: UNK DAILY DOSING FOR 10 OUT OF 14 DAYS, OFF FOR 14 DAYS
     Route: 042
     Dates: start: 202204

REACTIONS (2)
  - Aphasia [Unknown]
  - Suspected counterfeit product [Unknown]
